FAERS Safety Report 8884093 (Version 3)
Quarter: 2013Q1

REPORT INFORMATION
  Report Type: Spontaneous
  Country: US (occurrence: US)
  Receive Date: 20121102
  Receipt Date: 20130102
  Transmission Date: 20140127
  Serious: Yes (Hospitalization, Other)
  Sender: FDA-Public Use
  Company Number: US-GILEAD-2012-0063967

PATIENT
  Age: 85 Year
  Sex: Female

DRUGS (2)
  1. LETAIRIS [Suspect]
     Indication: COR PULMONALE CHRONIC
     Dosage: 10 MG, QD
     Route: 048
     Dates: start: 20091105
  2. TYVASO [Suspect]

REACTIONS (6)
  - Transfusion [Unknown]
  - Haemorrhage [Unknown]
  - Dyspnoea [Unknown]
  - Arthritis [Unknown]
  - Swelling [Unknown]
  - Fluid retention [Unknown]
